FAERS Safety Report 9470241 (Version 1)
Quarter: 2013Q3

REPORT INFORMATION
  Report Type: Spontaneous
  Country: US (occurrence: US)
  Receive Date: 20130822
  Receipt Date: 20130822
  Transmission Date: 20140515
  Serious: No
  Sender: FDA-Public Use
  Company Number: US-SANOFI-AVENTIS-2013SA039524

PATIENT
  Age: 71 Year
  Sex: Female

DRUGS (8)
  1. MULTAQ [Suspect]
     Indication: ATRIAL FIBRILLATION
     Route: 065
  2. XARELTO [Concomitant]
  3. DILTIAZEM [Concomitant]
  4. FOSAMAX [Concomitant]
  5. ENALAPRIL [Concomitant]
  6. VITAMIN D3 [Concomitant]
  7. MULTIVITAMINS [Concomitant]
  8. OMEGA 3 [Concomitant]

REACTIONS (1)
  - Hepatic enzyme increased [Not Recovered/Not Resolved]
